FAERS Safety Report 12256132 (Version 1)
Quarter: 2016Q2

REPORT INFORMATION
  Report Type: Spontaneous
  Country: US (occurrence: None)
  Receive Date: 20160411
  Receipt Date: 20160411
  Transmission Date: 20160815
  Serious: Yes (Hospitalization)
  Sender: FDA-Public Use
  Company Number: None

PATIENT
  Age: 59 Year
  Sex: Female
  Weight: 74.84 kg

DRUGS (10)
  1. ISOVUE [Suspect]
     Active Substance: IOPAMIDOL
     Indication: COMPUTERISED TOMOGRAM
  2. VITAMIN D [Concomitant]
     Active Substance: CHOLECALCIFEROL
  3. ASPIRIN. [Concomitant]
     Active Substance: ASPIRIN
  4. PROLIA [Concomitant]
     Active Substance: DENOSUMAB
  5. CENTRUM SILVER MULTIVITAMIN [Concomitant]
  6. FLAXOIL [Concomitant]
  7. VITAMIN B12 [Concomitant]
     Active Substance: CYANOCOBALAMIN
  8. ANASTROZOLE. [Concomitant]
     Active Substance: ANASTROZOLE
  9. GADOLINIUM BASED CONTRAST AGENTS [Concomitant]
  10. CALCIUM [Concomitant]
     Active Substance: CALCIUM

REACTIONS (6)
  - Paraesthesia [None]
  - Hypoaesthesia [None]
  - Speech disorder [None]
  - Contrast media reaction [None]
  - Flushing [None]
  - Rash [None]

NARRATIVE: CASE EVENT DATE: 20150911
